FAERS Safety Report 8509021-0 (Version None)
Quarter: 2012Q3

REPORT INFORMATION
  Report Type: 
  Country: None (occurrence: None)
  Receive Date: 20120713
  Receipt Date: 20120710
  Transmission Date: 20120928
  Serious: Yes (Disabling, Other)
  Sender: FDA-Public Use
  Company Number: US-AMGEN-USASP2012042782

PATIENT
  Age: 82 Year
  Sex: Male

DRUGS (2)
  1. SULFASALAZINE [Concomitant]
     Dosage: 1 MG, UNK
     Dates: start: 20120601
  2. ENBREL [Suspect]
     Indication: RHEUMATOID ARTHRITIS
     Dosage: 50 MG, QWK
     Dates: start: 20101203

REACTIONS (5)
  - BLINDNESS UNILATERAL [None]
  - INGUINAL HERNIA [None]
  - WHITE BLOOD CELL COUNT DECREASED [None]
  - HERNIA [None]
  - PAIN IN EXTREMITY [None]
